FAERS Safety Report 5884083-8 (Version None)
Quarter: 2008Q3

REPORT INFORMATION
  Report Type: 
  Country: None (occurrence: None)
  Receive Date: 20080915
  Receipt Date: 20080904
  Transmission Date: 20090109
  Serious: Yes (Life-Threatening, Hospitalization, Other)
  Sender: FDA-Public Use
  Company Number: JP-JNJFOC-20080405697

PATIENT
  Sex: Male

DRUGS (17)
  1. REMICADE [Suspect]
     Route: 042
  2. REMICADE [Suspect]
     Route: 042
  3. REMICADE [Suspect]
     Route: 042
  4. REMICADE [Suspect]
     Route: 042
  5. REMICADE [Suspect]
     Route: 042
  6. REMICADE [Suspect]
     Route: 042
  7. REMICADE [Suspect]
     Route: 042
  8. REMICADE [Suspect]
     Route: 042
  9. REMICADE [Suspect]
     Indication: INFLAMMATORY BOWEL DISEASE
     Route: 042
  10. ALFAROL [Concomitant]
     Indication: DRUG USE FOR UNKNOWN INDICATION
     Route: 048
  11. VITAMIN K TAB [Concomitant]
     Indication: DRUG USE FOR UNKNOWN INDICATION
  12. PENTASA [Concomitant]
     Route: 048
  13. COTRIM [Concomitant]
     Route: 048
  14. COTRIM [Concomitant]
     Dosage: 2 TIMES/W (1 TAB IN THE MORNING, 0.5 TAB IN THE EVENING)
     Route: 048
  15. GLAKAY [Concomitant]
     Route: 048
  16. CORTRIL [Concomitant]
     Dosage: EVERY OTHER DAY
     Route: 048
  17. ENSURE [Concomitant]
     Route: 048

REACTIONS (3)
  - CALCULUS URINARY [None]
  - DISSEMINATED INTRAVASCULAR COAGULATION [None]
  - SEPSIS [None]
